FAERS Safety Report 20623556 (Version 1)
Quarter: 2022Q1

REPORT INFORMATION
  Report Type: Spontaneous
  Country: US (occurrence: None)
  Receive Date: 20220322
  Receipt Date: 20220322
  Transmission Date: 20220424
  Serious: No
  Sender: FDA-Public Use
  Company Number: None

PATIENT

DRUGS (1)
  1. AMOXICILLIN [Suspect]
     Active Substance: AMOXICILLIN

REACTIONS (4)
  - Incorrect dose administered [None]
  - Drug monitoring procedure not performed [None]
  - Product prescribing error [None]
  - Product dispensing error [None]
